FAERS Safety Report 11077868 (Version 5)
Quarter: 2019Q3

REPORT INFORMATION
  Report Type: Report from Study
  Country: CA (occurrence: CA)
  Receive Date: 20150430
  Receipt Date: 20190726
  Transmission Date: 20191004
  Serious: Yes (Hospitalization)
  Sender: FDA-Public Use
  Company Number: CA-PFIZER INC-2015136816

PATIENT
  Age: 73 Year
  Sex: Male
  Weight: 96 kg

DRUGS (10)
  1. AMLODIPINE BESILATE [Suspect]
     Active Substance: AMLODIPINE BESYLATE
     Indication: CARDIAC DISORDER
     Dosage: 5 MG, ONCE DAILY
     Route: 048
     Dates: start: 1992, end: 20150418
  2. ZOPICLONE [Concomitant]
     Active Substance: ZOPICLONE
     Indication: INSOMNIA
     Dosage: UNK
  3. COLACE [Concomitant]
     Active Substance: DOCUSATE SODIUM
     Indication: CONSTIPATION
     Dosage: UNK
  4. CYTARABINE. [Suspect]
     Active Substance: CYTARABINE
     Indication: ACUTE MYELOID LEUKAEMIA
     Dosage: 20 MG, TWICE DAILY (MORNING AND EVENING: 12 HOURS APART) ON DAYS 1-10 OF 28 DAY CYCLE
     Route: 058
     Dates: start: 20150414, end: 20150418
  5. ATORVASTATIN [Concomitant]
     Active Substance: ATORVASTATIN
     Indication: DYSLIPIDAEMIA
     Dosage: UNK
     Route: 048
  6. PF-04449913 [Suspect]
     Active Substance: GLASDEGIB
     Indication: ACUTE MYELOID LEUKAEMIA
     Dosage: 100 MG, ONCE DAILY CONTINUOUS
     Route: 048
     Dates: start: 20150414, end: 20150418
  7. RAMIPRIL. [Suspect]
     Active Substance: RAMIPRIL
     Indication: CARDIAC DISORDER
     Dosage: 5 MG, ONCE A DAY
     Route: 048
     Dates: start: 1992, end: 20150418
  8. PANTOLOC [Concomitant]
     Active Substance: PANTOPRAZOLE SODIUM
     Indication: GASTROOESOPHAGEAL REFLUX DISEASE
     Dosage: UNK
  9. CODEINE [Concomitant]
     Active Substance: CODEINE
     Indication: PAIN
     Dosage: UNK
  10. HYDREA [Concomitant]
     Active Substance: HYDROXYUREA
     Indication: ACUTE MYELOID LEUKAEMIA
     Dosage: 500 MG, 1X/DAY
     Route: 048
     Dates: start: 20150319, end: 20150419

REACTIONS (2)
  - Atrial fibrillation [Recovered/Resolved]
  - Tachyarrhythmia [Recovered/Resolved]

NARRATIVE: CASE EVENT DATE: 20150418
